FAERS Safety Report 9434131 (Version 1)
Quarter: 2013Q3

REPORT INFORMATION
  Report Type: Spontaneous
  Country: CH (occurrence: CH)
  Receive Date: 20130801
  Receipt Date: 20130801
  Transmission Date: 20140515
  Serious: Yes (Hospitalization, Other)
  Sender: FDA-Public Use
  Company Number: CH-009507513-1307CHE015271

PATIENT
  Age: 49 Year
  Sex: Female

DRUGS (6)
  1. REMERON [Suspect]
     Dosage: 4 DF AT ONCE,TOTAL DAILY DOSE 120MG
     Route: 048
     Dates: start: 20130430, end: 20130430
  2. VENLAFAXINE HYDROCHLORIDE [Suspect]
     Dosage: 12 DF AT ONCE, TOTAL DAILY DOSE:1800 MG
     Route: 048
     Dates: start: 20130430, end: 20130430
  3. LAMOTRIGINE [Suspect]
     Dosage: 15 DF AT ONCE, TOTAL DAILY DOSE 3000MG
     Route: 048
     Dates: start: 20130430, end: 20130430
  4. ACETAMINOPHEN [Suspect]
     Dosage: 6 DF AT ONCE, TOTAL DAILY DOSE:3000MG
     Route: 048
     Dates: start: 20130430, end: 20130430
  5. NALTREXONE [Suspect]
     Dosage: UNK
     Route: 048
     Dates: start: 20130430, end: 20130430
  6. NIMESULIDE [Suspect]
     Dosage: UNK
     Route: 048
     Dates: start: 20130430, end: 20130430

REACTIONS (4)
  - Coma [Recovered/Resolved]
  - Suicide attempt [Recovered/Resolved]
  - Agitation [Recovered/Resolved]
  - Hypotension [Recovered/Resolved]
